FAERS Safety Report 9683580 (Version 1)
Quarter: 2013Q4

REPORT INFORMATION
  Report Type: Spontaneous
  Country: US (occurrence: US)
  Receive Date: 20131112
  Receipt Date: 20131112
  Transmission Date: 20140711
  Serious: No
  Sender: FDA-Public Use
  Company Number: US-B.I. PHARMACEUTICALS,INC./RIDGEFIELD-2013-BI-35014BP

PATIENT
  Sex: Male
  Weight: 86 kg

DRUGS (4)
  1. COMBIVENT [Suspect]
     Indication: ALPHA-1 ANTI-TRYPSIN DEFICIENCY
     Dosage: STRENGTH: 20 MCG / 100 MCG; DAILY DOSE: 80 MCG/400 MCG
     Route: 055
     Dates: start: 20130916
  2. ADVAIR [Concomitant]
     Indication: ALPHA-1 ANTI-TRYPSIN DEFICIENCY
     Dosage: 2 PUF
     Route: 055
     Dates: start: 2010
  3. IPRATROPIUM BROMIDE/ ALBUTEROL SULFATE [Concomitant]
     Indication: ALPHA-1 ANTI-TRYPSIN DEFICIENCY
     Dosage: FORMULATION: INHALATION SOLUTION, STRENGTH: 1 AMPULE; DAILY DOSE: 3 AMPULES
     Route: 055
     Dates: start: 2010
  4. PROLASTIN  C [Concomitant]
     Indication: ALPHA-1 ANTI-TRYPSIN DEFICIENCY
     Dosage: FORMULATION: INTRAVENOUS
     Route: 042
     Dates: start: 2010

REACTIONS (2)
  - Dyspnoea [Recovered/Resolved]
  - Off label use [Not Recovered/Not Resolved]
